FAERS Safety Report 5689099-2 (Version None)
Quarter: 2008Q1

REPORT INFORMATION
  Report Type: 
  Country: None (occurrence: None)
  Receive Date: 20080331
  Receipt Date: 20080320
  Transmission Date: 20080703
  Serious: Yes (Hospitalization)
  Sender: FDA-Public Use
  Company Number: TR-SANOFI-SYNTHELABO-A01200802325

PATIENT
  Age: 62 Year
  Sex: Male

DRUGS (8)
  1. LEFLUNOMIDE [Concomitant]
     Indication: POLYARTHRITIS
     Dosage: 10 MG
     Route: 065
     Dates: start: 20050101, end: 20070101
  2. LEFLUNOMIDE [Concomitant]
     Dosage: 20 MG
     Route: 065
     Dates: start: 20070101
  3. PREDNISOLONE [Concomitant]
     Indication: RHEUMATOID ARTHRITIS
     Dosage: 7.5 MG
     Route: 065
     Dates: end: 20050101
  4. PREDNISOLONE [Concomitant]
     Dosage: 15 MG
     Route: 065
     Dates: start: 20050101
  5. SULFASALAZINE [Concomitant]
     Indication: RHEUMATOID ARTHRITIS
     Dosage: 2 G
     Route: 065
  6. METHOTREXATE [Concomitant]
     Indication: RHEUMATOID ARTHRITIS
     Route: 065
     Dates: end: 20050101
  7. METHOTREXATE [Concomitant]
     Route: 065
  8. HYDROXYCHLOROQUINE [Suspect]
     Indication: RHEUMATOID ARTHRITIS
     Route: 065
     Dates: start: 20070401, end: 20070601

REACTIONS (2)
  - HYPOGLYCAEMIA [None]
  - HYPOGLYCAEMIC UNCONSCIOUSNESS [None]
